FAERS Safety Report 13086145 (Version 1)
Quarter: 2017Q1

REPORT INFORMATION
  Report Type: Report from Study
  Country: NO (occurrence: NO)
  Receive Date: 20170104
  Receipt Date: 20170104
  Transmission Date: 20170428
  Serious: Yes (Hospitalization)
  Sender: FDA-Public Use
  Company Number: NO-PROMETHEUS LABORATORIES-2016PL000098

PATIENT
  Age: 33 Year
  Sex: Male

DRUGS (3)
  1. PROLEUKIN [Suspect]
     Active Substance: ALDESLEUKIN
     Indication: PRODUCT USED FOR UNKNOWN INDICATION
     Dosage: UNK UNKNOWN, UNK
     Route: 065
     Dates: start: 20010319, end: 20010601
  2. ISENTRESS [Concomitant]
     Active Substance: RALTEGRAVIR POTASSIUM
  3. KIVEXA [Concomitant]
     Active Substance: ABACAVIR SULFATE\LAMIVUDINE

REACTIONS (21)
  - Diabetic ketoacidosis [Unknown]
  - Weight increased [Unknown]
  - Polyneuropathy [Unknown]
  - Weight decreased [Unknown]
  - Skin induration [Unknown]
  - Functional gastrointestinal disorder [Unknown]
  - Thirst [Unknown]
  - Pollakiuria [Unknown]
  - Osteoporosis [Unknown]
  - Aspartate aminotransferase increased [Unknown]
  - Metabolic acidosis [Unknown]
  - Blood pressure increased [Unknown]
  - Bone cyst [Unknown]
  - Muscle injury [Unknown]
  - Multiple-drug resistance [Unknown]
  - Type 1 diabetes mellitus [Unknown]
  - Blood glucose increased [Unknown]
  - Decreased appetite [Unknown]
  - Tendon rupture [Unknown]
  - Sensory disturbance [Unknown]
  - Diabetes mellitus inadequate control [Unknown]

NARRATIVE: CASE EVENT DATE: 2001
